FAERS Safety Report 9949588 (Version 1)
Quarter: 2014Q1

REPORT INFORMATION
  Report Type: Spontaneous
  Country: US (occurrence: None)
  Receive Date: 20140124
  Receipt Date: 20140124
  Transmission Date: 20141002
  Serious: Yes (Other)
  Sender: FDA-Public Use
  Company Number: 2011AP000018

PATIENT
  Age: 30 Year
  Sex: Female

DRUGS (4)
  1. LISINOPRIL [Suspect]
     Indication: HYPERTENSION
  2. FUROSEMIDE [Concomitant]
  3. QUINAPRIL [Concomitant]
  4. ENALAPRIL [Concomitant]

REACTIONS (1)
  - Hepatotoxicity [None]
